FAERS Safety Report 10276901 (Version 2)
Quarter: 2014Q3

REPORT INFORMATION
  Report Type: Report from Study
  Country: NL (occurrence: NL)
  Receive Date: 20140703
  Receipt Date: 20140806
  Transmission Date: 20150326
  Serious: Yes (Other)
  Sender: FDA-Public Use
  Company Number: NL-CELGENEUS-114-21660-14063473

PATIENT
  Sex: Male

DRUGS (3)
  1. ABRAXANE [Suspect]
     Active Substance: PACLITAXEL
     Indication: PANCREATIC CARCINOMA
     Route: 065
     Dates: end: 20140603
  2. ABRAXANE [Suspect]
     Active Substance: PACLITAXEL
     Route: 065
     Dates: start: 20140616
  3. GEMCITABINE [Concomitant]
     Active Substance: GEMCITABINE\GEMCITABINE HYDROCHLORIDE
     Indication: PANCREATIC CARCINOMA
     Dosage: 1000 MILLIGRAM/SQ. METER
     Route: 065

REACTIONS (1)
  - Liver disorder [Recovered/Resolved]
